FAERS Safety Report 24956683 (Version 3)
Quarter: 2025Q1

REPORT INFORMATION
  Report Type: Spontaneous
  Country: CL (occurrence: CL)
  Receive Date: 20250211
  Receipt Date: 20250310
  Transmission Date: 20250409
  Serious: Yes (Hospitalization, Other)
  Sender: BIOMARIN
  Company Number: CL-BIOMARINAP-CL-2025-163653

PATIENT

DRUGS (1)
  1. NAGLAZYME [Suspect]
     Active Substance: GALSULFASE
     Indication: Mucopolysaccharidosis VI
     Dosage: UNK, QW
     Route: 042

REACTIONS (4)
  - Faecaloma [Recovering/Resolving]
  - Superinfection [Recovering/Resolving]
  - Pyrexia [Recovering/Resolving]
  - Pseudocyst [Recovering/Resolving]

NARRATIVE: CASE EVENT DATE: 20250131
